FAERS Safety Report 8106639-4 (Version None)
Quarter: 2012Q1

REPORT INFORMATION
  Report Type: 
  Country: None (occurrence: None)
  Receive Date: 20120202
  Receipt Date: 20120127
  Transmission Date: 20120608
  Serious: Yes (Hospitalization)
  Sender: FDA-Public Use
  Company Number: FI-B.I. PHARMACEUTICALS,INC./RIDGEFIELD-2012-SW-00036SF

PATIENT
  Age: 57 Year
  Sex: Male

DRUGS (6)
  1. PLACEBO [Suspect]
     Indication: CHRONIC OBSTRUCTIVE PULMONARY DISEASE
     Dosage: STRENGTH: 2.5 MG/NONE
     Dates: start: 20111201, end: 20120116
  2. SPIRONOLACTONE [Concomitant]
     Dosage: EXACT DOSE NOT REPORTED
  3. DIGOXIN SEMI [Concomitant]
     Dosage: 1 ANZ
  4. SERETIDE EVOHALER [Concomitant]
     Dosage: 4 ANZ
  5. DAXAS [Concomitant]
     Dosage: 500 MCG
  6. FURESIS [Concomitant]
     Dosage: EXACT DOSE NOT REPORTED

REACTIONS (2)
  - PNEUMONIA [None]
  - MYOCARDIAL INFARCTION [None]
